FAERS Safety Report 22042699 (Version 1)
Quarter: 2023Q1

REPORT INFORMATION
  Report Type: Other
  Country: GT (occurrence: GT)
  Receive Date: 20230228
  Receipt Date: 20230228
  Transmission Date: 20230418
  Serious: Yes (Death, Hospitalization, Disabling, Other)
  Sender: FDA-Public Use
  Company Number: GT-TOLMAR, INC.-23GT038744

PATIENT
  Age: 64 Year
  Sex: Male

DRUGS (2)
  1. ELIGARD [Suspect]
     Active Substance: LEUPROLIDE ACETATE
     Indication: Prostate cancer
     Dosage: 45 MILLIGRAM, Q 3 MONTH
     Route: 058
     Dates: start: 202210
  2. BICALUTAMIDE [Concomitant]
     Active Substance: BICALUTAMIDE
     Indication: Prostate cancer
     Dosage: 1 DOSAGE FORM, QD

REACTIONS (16)
  - Respiratory arrest [Fatal]
  - Road traffic accident [Unknown]
  - Scratch [Unknown]
  - Impaired healing [Unknown]
  - Wound haemorrhage [Unknown]
  - Renal failure [Unknown]
  - Hepatic failure [Unknown]
  - Tooth loss [Unknown]
  - Bone cancer [Unknown]
  - Decreased immune responsiveness [Unknown]
  - Prostate cancer [Fatal]
  - Metastasis [Unknown]
  - Feeding disorder [Unknown]
  - Mastication disorder [Unknown]
  - Contusion [Unknown]
  - Hypovitaminosis [Unknown]

NARRATIVE: CASE EVENT DATE: 20221108
